FAERS Safety Report 10160986 (Version 1)
Quarter: 2014Q2

REPORT INFORMATION
  Report Type: Spontaneous
  Country: US (occurrence: US)
  Receive Date: 20140508
  Receipt Date: 20140508
  Transmission Date: 20141212
  Serious: No
  Sender: FDA-Public Use
  Company Number: US-GILEAD-2014-0101639

PATIENT
  Sex: Male

DRUGS (4)
  1. SOVALDI [Suspect]
     Indication: PRODUCT USED FOR UNKNOWN INDICATION
     Dosage: UNK
  2. RIBAVIRIN [Concomitant]
     Dosage: UNK
  3. LISINOPRIL [Concomitant]
  4. NIFEDIPINE [Concomitant]

REACTIONS (1)
  - Blood pressure increased [Unknown]
